FAERS Safety Report 4710838-9 (Version None)
Quarter: 2005Q3

REPORT INFORMATION
  Report Type: 
  Country: None (occurrence: None)
  Receive Date: 20050711
  Receipt Date: 20050624
  Transmission Date: 20060218
  Serious: Yes (Hospitalization, Disabling, Other)
  Sender: FDA-Public Use
  Company Number: US-GLAXOSMITHKLINE-A0564121A

PATIENT
  Age: 62 Year
  Sex: Female

DRUGS (6)
  1. ANCEF [Suspect]
     Indication: ILL-DEFINED DISORDER
     Dosage: 1000MG SINGLE DOSE
     Route: 042
     Dates: start: 20041214
  2. CIPRO [Concomitant]
  3. PRILOSEC [Concomitant]
  4. PRAVACHOL [Concomitant]
  5. TENORMIN [Concomitant]
  6. PLAVIX [Concomitant]

REACTIONS (2)
  - CLOSTRIDIUM COLITIS [None]
  - WEIGHT DECREASED [None]
